FAERS Safety Report 5478142-1 (Version None)
Quarter: 2007Q4

REPORT INFORMATION
  Report Type: 
  Country: None (occurrence: None)
  Receive Date: 20071005
  Receipt Date: 20061218
  Transmission Date: 20080405
  Serious: No
  Sender: FDA-Public Use
  Company Number: US-BRISTOL-MYERS SQUIBB COMPANY-13616024

PATIENT
  Sex: Male

DRUGS (4)
  1. AVAPRO [Suspect]
  2. COUMADIN [Concomitant]
  3. PLAVIX [Concomitant]
  4. TOPROL-XL [Concomitant]

REACTIONS (2)
  - CHROMATURIA [None]
  - SYNCOPE [None]
